FAERS Safety Report 17863878 (Version 1)
Quarter: 2020Q2

REPORT INFORMATION
  Report Type: Spontaneous
  Country: AT (occurrence: AT)
  Receive Date: 20200605
  Receipt Date: 20200605
  Transmission Date: 20200714
  Serious: Yes (Hospitalization, Other)
  Sender: FDA-Public Use
  Company Number: AT-SA-2020SA144293

PATIENT

DRUGS (7)
  1. TEBOFORTAN [Concomitant]
     Active Substance: GINKGO
     Route: 048
  2. NOVALGIN (METAMIZOLE SODIUM) [Concomitant]
     Active Substance: METAMIZOLE SODIUM
     Route: 048
  3. LENDORM [Concomitant]
     Active Substance: BROTIZOLAM
     Route: 048
  4. AMOXICILLIN RATIOPHARM [Concomitant]
     Dates: start: 20200428, end: 20200513
  5. MAGNESIUM VERLA [MAGNESIUM CITRATE;MAGNESIUM GLUTAMATE;MAGNESIUM NICOT [Concomitant]
     Active Substance: MAGNESIUM
     Route: 048
  6. CODIDOL [Concomitant]
     Route: 048
  7. RIFOLDIN [Suspect]
     Active Substance: RIFAMPIN
     Indication: POST PROCEDURAL INFECTION
     Dosage: 2 DF, QD
     Dates: start: 20200428, end: 20200513

REACTIONS (5)
  - Jaundice [Not Recovered/Not Resolved]
  - Nausea [Not Recovered/Not Resolved]
  - Drug-induced liver injury [Not Recovered/Not Resolved]
  - General physical health deterioration [Not Recovered/Not Resolved]
  - Palpitations [Not Recovered/Not Resolved]

NARRATIVE: CASE EVENT DATE: 202005
